FAERS Safety Report 10163923 (Version 3)
Quarter: 2014Q3

REPORT INFORMATION
  Report Type: Spontaneous
  Country: US (occurrence: US)
  Receive Date: 20140510
  Receipt Date: 20140704
  Transmission Date: 20150326
  Serious: No
  Sender: FDA-Public Use
  Company Number: US-009507513-1405USA000126

PATIENT
  Age: 25 Year
  Sex: Female
  Weight: 122.45 kg

DRUGS (2)
  1. NEXPLANON [Suspect]
     Active Substance: ETONOGESTREL
     Dosage: LEFT ARM , IMPLANT 68 MG
     Route: 058
     Dates: start: 20130308, end: 20140429
  2. NEXPLANON [Suspect]
     Active Substance: ETONOGESTREL
     Dosage: UNK
     Route: 059
     Dates: start: 20140429

REACTIONS (7)
  - Product quality issue [Unknown]
  - Device kink [Unknown]
  - Obesity [Unknown]
  - Device breakage [Unknown]
  - Metrorrhagia [Unknown]
  - Discomfort [Unknown]
  - Vaginal haemorrhage [Unknown]

NARRATIVE: CASE EVENT DATE: 20140429
